FAERS Safety Report 21596523 (Version 1)
Quarter: 2022Q4

REPORT INFORMATION
  Report Type: Spontaneous
  Country: NZ (occurrence: NZ)
  Receive Date: 20221115
  Receipt Date: 20221115
  Transmission Date: 20230113
  Serious: Yes (Other)
  Sender: FDA-Public Use
  Company Number: NZ-JNJFOC-20221124214

PATIENT
  Age: 55 Year
  Sex: Male

DRUGS (1)
  1. REMICADE [Suspect]
     Active Substance: INFLIXIMAB
     Indication: Bruton^s agammaglobulinaemia
     Route: 041

REACTIONS (3)
  - Bacteraemia [Unknown]
  - Bordetella infection [Unknown]
  - Off label use [Unknown]
